FAERS Safety Report 18652853 (Version 2)
Quarter: 2020Q4

REPORT INFORMATION
  Report Type: Spontaneous
  Country: TW (occurrence: TW)
  Receive Date: 20201223
  Receipt Date: 20201229
  Transmission Date: 20210114
  Serious: Yes (Other)
  Sender: FDA-Public Use
  Company Number: TW-AMGEN-TWNSP2020208223

PATIENT
  Age: 69 Year
  Sex: Male

DRUGS (3)
  1. SALAZINE [Concomitant]
     Active Substance: SULFASALAZINE
     Dosage: 1 DF,  BID
  2. ENBREL [Suspect]
     Active Substance: ETANERCEPT
     Indication: RHEUMATOID ARTHRITIS
     Dosage: 25 MG, BIW
     Route: 058
     Dates: start: 20081202
  3. ENBREL [Suspect]
     Active Substance: ETANERCEPT
     Dosage: 25 MG, Q5D
     Route: 058
     Dates: end: 20201214

REACTIONS (2)
  - Off label use [Unknown]
  - Benign prostatic hyperplasia [Not Recovered/Not Resolved]
